FAERS Safety Report 9549450 (Version 4)
Quarter: 2014Q3

REPORT INFORMATION
  Report Type: Spontaneous
  Country: JP (occurrence: None)
  Receive Date: 20130919
  Receipt Date: 20140728
  Transmission Date: 20150326
  Serious: Yes (Death, Hospitalization)
  Sender: FDA-Public Use
  Company Number: SYM-2013-10697

PATIENT
  Age: 44 Year
  Sex: Male
  Weight: 43 kg

DRUGS (6)
  1. CHOREAZINE [Suspect]
     Active Substance: TETRABENAZINE
     Indication: HUNTINGTON^S DISEASE
     Dosage: 12.5MG, 1 IN 1 D, ORAL
     Route: 048
     Dates: start: 20130809, end: 20130906
  2. HALOPERIDOL (HALOPERIDOL) (HALOPERIDOL) [Suspect]
     Active Substance: HALOPERIDOL
     Indication: HUNTINGTON^S DISEASE
     Route: 048
     Dates: start: 2008, end: 20140320
  3. TASMOLIN (BIPERIDEN HYDROCHLORIDE) (BIPERIDEN HYDROCHLORIDE) [Concomitant]
  4. ZYPREXA (OLANZAPINE) (OLANZAPINE) [Concomitant]
  5. LEVOTOMIN [Suspect]
     Active Substance: LEVOMEPROMAZINE
     Indication: HUNTINGTON^S DISEASE
     Dosage: STOPPED
     Route: 048
  6. TIARYL [Concomitant]

REACTIONS (8)
  - Infection [None]
  - Malnutrition [None]
  - Respiratory failure [None]
  - Cachexia [None]
  - Aspartate aminotransferase increased [None]
  - Pyrexia [None]
  - Blood urea increased [None]
  - Dysphagia [None]
